FAERS Safety Report 19312010 (Version 2)
Quarter: 2021Q2

REPORT INFORMATION
  Report Type: Spontaneous
  Country: ES (occurrence: ES)
  Receive Date: 20210527
  Receipt Date: 20210628
  Transmission Date: 20210717
  Serious: Yes (Other)
  Sender: FDA-Public Use
  Company Number: ES-AMGEN-ESPSP2021080698

PATIENT
  Age: 46 Year
  Sex: Female

DRUGS (2)
  1. AIMOVIG [Suspect]
     Active Substance: ERENUMAB-AOOE
     Indication: MIGRAINE
     Dosage: UNK
     Route: 065
  2. AIMOVIG [Suspect]
     Active Substance: ERENUMAB-AOOE
     Dosage: 70 MILLIGRAM
     Route: 058
     Dates: start: 202105, end: 202106

REACTIONS (11)
  - Urticaria [Unknown]
  - Rash [Unknown]
  - Hypersensitivity [Unknown]
  - Oropharyngeal discomfort [Unknown]
  - Enlarged uvula [Recovered/Resolved]
  - Sneezing [Unknown]
  - Sensation of foreign body [Recovered/Resolved]
  - Upper airway obstruction [Unknown]
  - Cough [Recovered/Resolved]
  - Choking [Unknown]
  - Palatal oedema [Unknown]

NARRATIVE: CASE EVENT DATE: 202105
